FAERS Safety Report 12786702 (Version 2)
Quarter: 2017Q2

REPORT INFORMATION
  Report Type: Report from Study
  Country: None (occurrence: CA)
  Receive Date: 20160927
  Receipt Date: 20170629
  Transmission Date: 20170830
  Serious: Yes (Hospitalization, Other)
  Sender: FDA-Public Use
  Company Number: CA-ABBVIE-16K-028-1653442-00

PATIENT
  Sex: Male

DRUGS (2)
  1. HUMIRA [Suspect]
     Active Substance: ADALIMUMAB
     Indication: JUVENILE IDIOPATHIC ARTHRITIS
     Route: 058
     Dates: start: 20160211, end: 20160610
  2. HUMIRA [Suspect]
     Active Substance: ADALIMUMAB
     Route: 058
     Dates: start: 20160908, end: 20160908

REACTIONS (26)
  - Asthenia [Not Recovered/Not Resolved]
  - Mobility decreased [Recovered/Resolved]
  - Rectal abscess [Unknown]
  - Juvenile idiopathic arthritis [Recovered/Resolved]
  - Fungal infection [Recovering/Resolving]
  - Ligament disorder [Recovered/Resolved]
  - Ligament disorder [Not Recovered/Not Resolved]
  - Infection [Unknown]
  - Joint swelling [Unknown]
  - Arthralgia [Unknown]
  - Rectal abscess [Not Recovered/Not Resolved]
  - Rectal haemorrhage [Unknown]
  - Blood count abnormal [Not Recovered/Not Resolved]
  - Rectal discharge [Not Recovered/Not Resolved]
  - Anal abscess [Unknown]
  - Muscle strain [Recovered/Resolved with Sequelae]
  - Arthropathy [Not Recovered/Not Resolved]
  - Inflammatory bowel disease [Not Recovered/Not Resolved]
  - Rheumatoid arthritis [Not Recovered/Not Resolved]
  - Muscle tightness [Recovered/Resolved]
  - Juvenile idiopathic arthritis [Recovered/Resolved]
  - Crohn^s disease [Not Recovered/Not Resolved]
  - Colitis [Not Recovered/Not Resolved]
  - Joint warmth [Recovered/Resolved]
  - Joint range of motion decreased [Recovered/Resolved]
  - Discomfort [Not Recovered/Not Resolved]

NARRATIVE: CASE EVENT DATE: 2016
